FAERS Safety Report 4472971-9 (Version None)
Quarter: 2004Q4

REPORT INFORMATION
  Report Type: 
  Country: None (occurrence: None)
  Receive Date: 20041013
  Receipt Date: 20040920
  Transmission Date: 20050328
  Serious: Yes (Other)
  Sender: FDA-Public Use
  Company Number: NZ-ROCHE-380871

PATIENT
  Age: 62 Year
  Sex: Male
  Weight: 98 kg

DRUGS (7)
  1. PEGASYS [Suspect]
     Dosage: STRENGTH REPORTED AS 180MCG.
     Route: 030
     Dates: start: 20040701
  2. PEGASYS [Suspect]
     Dosage: STRENGTH REPORTED AS 135MCG.
     Route: 030
     Dates: end: 20040830
  3. COPEGUS [Suspect]
     Route: 048
  4. COPEGUS [Suspect]
     Route: 048
     Dates: start: 20040701, end: 20040830
  5. DIGOXIN [Concomitant]
     Indication: ATRIAL FIBRILLATION
     Route: 048
  6. WARFARIN SODIUM [Concomitant]
     Route: 048
  7. CAPTOPRIL [Concomitant]
     Route: 048

REACTIONS (7)
  - FEELING ABNORMAL [None]
  - HAEMOGLOBIN DECREASED [None]
  - NEUTROPHIL COUNT DECREASED [None]
  - OEDEMA PERIPHERAL [None]
  - PLATELET COUNT DECREASED [None]
  - SCROTAL SWELLING [None]
  - SWELLING [None]
